FAERS Safety Report 8454690-7 (Version None)
Quarter: 2012Q2

REPORT INFORMATION
  Report Type: 
  Country: None (occurrence: None)
  Receive Date: 20120615
  Receipt Date: 20120615
  Transmission Date: 20120825
  Serious: Yes (Other)
  Sender: FDA-Public Use
  Company Number: None

PATIENT
  Sex: Female
  Weight: 52.6173 kg

DRUGS (1)
  1. GILDESS FE 1.5/30 [Suspect]
     Indication: CONTRACEPTION
     Dosage: 1 PO QD PO
     Route: 048
     Dates: start: 20111025, end: 20120515

REACTIONS (1)
  - PREGNANCY ON ORAL CONTRACEPTIVE [None]
